FAERS Safety Report 5490747-0 (Version None)
Quarter: 2007Q4

REPORT INFORMATION
  Report Type: 
  Country: None (occurrence: None)
  Receive Date: 20071019
  Receipt Date: 20071009
  Transmission Date: 20080405
  Serious: Yes (Hospitalization)
  Sender: FDA-Public Use
  Company Number: PT-ASTRAZENECA-2007AC01921

PATIENT
  Age: 57 Year
  Sex: Female

DRUGS (4)
  1. SEROQUEL [Suspect]
     Route: 048
     Dates: start: 20070401, end: 20070918
  2. LORAZEPAM [Concomitant]
  3. VENLAFAXINE HCL [Concomitant]
  4. MIRTAZAPINE [Concomitant]

REACTIONS (7)
  - BLOOD CREATININE DECREASED [None]
  - LEUKOCYTOSIS [None]
  - LYMPHOCYTE PERCENTAGE DECREASED [None]
  - MUSCLE RIGIDITY [None]
  - NEUROLEPTIC MALIGNANT SYNDROME [None]
  - NEUTROPHIL PERCENTAGE INCREASED [None]
  - RHABDOMYOLYSIS [None]
